FAERS Safety Report 8054473-6 (Version None)
Quarter: 2012Q1

REPORT INFORMATION
  Report Type: 
  Country: None (occurrence: None)
  Receive Date: 20120118
  Receipt Date: 20120111
  Transmission Date: 20120608
  Serious: Yes (Life-Threatening, Other)
  Sender: FDA-Public Use
  Company Number: JP-MERCK-1111USA01609

PATIENT
  Age: 30 Year
  Sex: Female
  Weight: 50 kg

DRUGS (13)
  1. DAIPHEN [Concomitant]
     Indication: PROPHYLAXIS
     Route: 065
     Dates: start: 20110917
  2. REBAMIPIDE [Concomitant]
     Indication: GASTRITIS
     Route: 065
     Dates: start: 20101101
  3. PREDNISOLONE [Concomitant]
     Indication: CHEMOTHERAPY
     Route: 065
     Dates: start: 20110917, end: 20110921
  4. DEXAMETHASONE SODIUM PHOSPHATE [Concomitant]
     Indication: CHEMOTHERAPY
     Route: 065
     Dates: start: 20110916
  5. DOXORUBICIN HYDROCHLORIDE [Concomitant]
     Indication: CHEMOTHERAPY
     Route: 065
     Dates: start: 20110917, end: 20110917
  6. ONCOVIN [Concomitant]
     Indication: CHEMOTHERAPY
     Route: 065
     Dates: start: 20110917, end: 20110917
  7. AMOBAN [Concomitant]
     Indication: INSOMNIA
     Route: 048
  8. SEDEKOPAN [Concomitant]
     Indication: INSOMNIA
     Route: 065
     Dates: start: 20110922
  9. MAGLAX (MAGNESIUM OXIDE) [Concomitant]
     Indication: CONSTIPATION
     Route: 048
     Dates: start: 20100601
  10. CYCLOPHOSPHAMIDE [Concomitant]
     Indication: CHEMOTHERAPY
     Route: 065
     Dates: start: 20110917, end: 20110917
  11. PEPCID [Suspect]
     Indication: PROPHYLAXIS
     Route: 048
     Dates: start: 20110917, end: 20110922
  12. GRANISETRON HYDROCHLORIDE [Concomitant]
     Indication: CHEMOTHERAPY
     Route: 065
     Dates: start: 20110917
  13. VELCADE [Concomitant]
     Indication: CHEMOTHERAPY
     Route: 065
     Dates: start: 20110916, end: 20110916

REACTIONS (2)
  - LONG QT SYNDROME [None]
  - CONVULSION [None]
